FAERS Safety Report 8600444-8 (Version None)
Quarter: 2012Q3

REPORT INFORMATION
  Report Type: 
  Country: None (occurrence: None)
  Receive Date: 20120817
  Receipt Date: 20120809
  Transmission Date: 20120928
  Serious: Yes (Hospitalization)
  Sender: FDA-Public Use
  Company Number: US-BAYER-2012-023355

PATIENT
  Age: 22 Year
  Sex: Female
  Weight: 54.4 kg

DRUGS (3)
  1. YAZ [Suspect]
     Dosage: UNK
     Dates: start: 20060101
  2. YASMIN [Suspect]
     Dosage: UNK
     Dates: start: 20060101
  3. PLAN B [Concomitant]

REACTIONS (7)
  - DIZZINESS [None]
  - PULMONARY EMBOLISM [None]
  - PALPITATIONS [None]
  - CHEST DISCOMFORT [None]
  - DYSPNOEA [None]
  - FEAR OF DEATH [None]
  - HYPERHIDROSIS [None]
